FAERS Safety Report 5908978-1 (Version None)
Quarter: 2008Q4

REPORT INFORMATION
  Report Type: 
  Country: None (occurrence: None)
  Receive Date: 20081006
  Receipt Date: 20081001
  Transmission Date: 20090506
  Serious: Yes (Life-Threatening)
  Sender: FDA-Public Use
  Company Number: GB-WYE-G02270308

PATIENT

DRUGS (3)
  1. GEMTUZUMAB OZOGAMICIN [Suspect]
     Dosage: UNKNOWN
  2. CYTARABINE [Suspect]
     Dosage: UNKNOWN
     Dates: start: 20080926, end: 20080927
  3. DAUNORUBICIN HCL [Suspect]
     Dosage: UNKNOWN
     Dates: start: 20080926, end: 20080927

REACTIONS (1)
  - MYOCARDIAL INFARCTION [None]
